FAERS Safety Report 6368625-4 (Version None)
Quarter: 2009Q3

REPORT INFORMATION
  Report Type: 
  Country: None (occurrence: None)
  Receive Date: 20090916
  Receipt Date: 20090902
  Transmission Date: 20100115
  Serious: Yes (Hospitalization)
  Sender: FDA-Public Use
  Company Number: 2009SP002215

PATIENT
  Age: 58 Year
  Sex: Female

DRUGS (21)
  1. OMNARIS [Suspect]
     Indication: MULTIPLE ALLERGIES
     Dosage: 200 UG; QD; NASAL, 100 UG; QD; NASAL
     Route: 045
     Dates: start: 20080401, end: 20080501
  2. OMNARIS [Suspect]
     Indication: NASAL CONGESTION
     Dosage: 200 UG; QD; NASAL, 100 UG; QD; NASAL
     Route: 045
     Dates: start: 20080401, end: 20080501
  3. OMNARIS [Suspect]
     Indication: MULTIPLE ALLERGIES
     Dosage: 200 UG; QD; NASAL, 100 UG; QD; NASAL
     Route: 045
     Dates: start: 20090811
  4. OMNARIS [Suspect]
     Indication: NASAL CONGESTION
     Dosage: 200 UG; QD; NASAL, 100 UG; QD; NASAL
     Route: 045
     Dates: start: 20090811
  5. ASTELIN [Suspect]
     Dosage: ; HS;
     Dates: start: 20080401
  6. ADVAIR DISKUS 100/50 [Concomitant]
  7. PROAIR HFA [Concomitant]
  8. TRAZODONE [Concomitant]
  9. LEVOXYL [Concomitant]
  10. MELATONIN [Concomitant]
  11. MOTRIN [Concomitant]
  12. ZYRTEC [Concomitant]
  13. FLONASE [Concomitant]
  14. NASONEX [Concomitant]
  15. LOVAZA [Concomitant]
  16. VITAMIN B6 [Concomitant]
  17. B COMPLEX /00212701/ [Concomitant]
  18. CALCIUM [Concomitant]
  19. VITAMIN D [Concomitant]
  20. GARLIC /01570501/ [Concomitant]
  21. FLUCONAZOLE [Concomitant]

REACTIONS (6)
  - ACUTE SINUSITIS [None]
  - BRONCHIAL HYPERREACTIVITY [None]
  - DEHYDRATION [None]
  - DYSPHONIA [None]
  - ESCHERICHIA URINARY TRACT INFECTION [None]
  - HYPONATRAEMIA [None]
